FAERS Safety Report 12301400 (Version 4)
Quarter: 2016Q3

REPORT INFORMATION
  Report Type: Spontaneous
  Country: US (occurrence: US)
  Receive Date: 20160425
  Receipt Date: 20160706
  Transmission Date: 20161109
  Serious: Yes (Other)
  Sender: FDA-Public Use
  Company Number: US-GLAXOSMITHKLINE-CHPA2016US003079

PATIENT

DRUGS (3)
  1. VASELINE INTENSIVE CARE [Concomitant]
     Indication: DRY SKIN
     Dosage: UNK
     Route: 065
  2. KERI ORIGINAL [Suspect]
     Active Substance: LANOLIN\MINERAL OIL
     Indication: DRY SKIN PROPHYLAXIS
     Dosage: UNK
  3. KERI SHEA BUTTER CUTANEOUS EMULSION [Suspect]
     Active Substance: SHEA BUTTER
     Indication: DRY SKIN PROPHYLAXIS
     Dosage: UNK, PRN
     Route: 061
     Dates: start: 20160229

REACTIONS (4)
  - Product quality issue [Unknown]
  - Road traffic accident [Unknown]
  - Drug ineffective [Unknown]
  - Product odour abnormal [Unknown]
